FAERS Safety Report 8576173 (Version 2)
Quarter: 2014Q1

REPORT INFORMATION
  Report Type: Report from Study
  Country: AU (occurrence: AU)
  Receive Date: 20120523
  Receipt Date: 20140306
  Transmission Date: 20141002
  Serious: Yes (Other)
  Sender: FDA-Public Use
  Company Number: AU-ROCHE-1071385

PATIENT
  Sex: Female

DRUGS (2)
  1. TOCILIZUMAB [Suspect]
     Indication: RHEUMATOID ARTHRITIS
     Route: 042
     Dates: start: 20110913
  2. TOCILIZUMAB [Suspect]
     Route: 042

REACTIONS (3)
  - Hernia [Unknown]
  - Arthralgia [Unknown]
  - Constipation [Unknown]
